FAERS Safety Report 19410798 (Version 1)
Quarter: 2021Q2

REPORT INFORMATION
  Report Type: Report from Study
  Country: DE (occurrence: DE)
  Receive Date: 20210614
  Receipt Date: 20210614
  Transmission Date: 20210717
  Serious: Yes (Other)
  Sender: FDA-Public Use
  Company Number: NVSC2021DE126539

PATIENT
  Age: 67 Year
  Sex: Male
  Weight: 92 kg

DRUGS (1)
  1. COSENTYX [Suspect]
     Active Substance: SECUKINUMAB
     Indication: PRODUCT USED FOR UNKNOWN INDICATION
     Dosage: 300 MG, QMO
     Route: 065
     Dates: start: 20161019

REACTIONS (9)
  - Arteriosclerosis [Recovered/Resolved]
  - Left ventricular hypertrophy [Recovered/Resolved]
  - Night sweats [Recovered/Resolved]
  - Tricuspid valve incompetence [Recovered/Resolved]
  - Thrombophlebitis superficial [Unknown]
  - Hepatic steatosis [Recovered/Resolved]
  - Gastrooesophageal reflux disease [Recovered/Resolved]
  - Hiatus hernia [Recovered/Resolved]
  - Aortic dilatation [Recovered/Resolved]

NARRATIVE: CASE EVENT DATE: 20200720
